FAERS Safety Report 15352482 (Version 2)
Quarter: 2018Q4

REPORT INFORMATION
  Report Type: Spontaneous
  Country: BR (occurrence: BR)
  Receive Date: 20180905
  Receipt Date: 20181001
  Transmission Date: 20190204
  Serious: Yes (Other)
  Sender: FDA-Public Use
  Company Number: BR-SA-2018SA237012

PATIENT
  Sex: Female

DRUGS (4)
  1. APIDRA [Concomitant]
     Active Substance: INSULIN GLULISINE
     Indication: DIABETES MELLITUS
     Dosage: SPORADIC USE
     Route: 058
  2. LANTUS [Suspect]
     Active Substance: INSULIN GLARGINE
     Indication: DIABETES MELLITUS
     Dosage: UNK
     Route: 030
     Dates: start: 2014
  3. OMEPRAZOLE. [Concomitant]
     Active Substance: OMEPRAZOLE
     Indication: ABDOMINAL PAIN UPPER
     Dosage: SPORADIC USE IN CRISIS
     Route: 048
  4. IMOSEC [Concomitant]
     Active Substance: LOPERAMIDE
     Indication: DIARRHOEA
     Dosage: UNK
     Route: 048

REACTIONS (9)
  - Flatulence [Unknown]
  - Abdominal pain upper [Unknown]
  - Blood glucose decreased [Not Recovered/Not Resolved]
  - Product use issue [Unknown]
  - Blood glucose abnormal [Unknown]
  - Back pain [Unknown]
  - Drug ineffective [Unknown]
  - Stenosis [Unknown]
  - Blood glucose increased [Not Recovered/Not Resolved]
